FAERS Safety Report 14598433 (Version 1)
Quarter: 2018Q1

REPORT INFORMATION
  Report Type: Spontaneous
  Country: US (occurrence: US)
  Receive Date: 20180302
  Receipt Date: 20180302
  Transmission Date: 20180509
  Serious: Yes (Hospitalization, Disabling)
  Sender: FDA-Public Use
  Company Number: None

PATIENT
  Age: 24 Year
  Sex: Female

DRUGS (2)
  1. ZYRTEC [Concomitant]
     Active Substance: CETIRIZINE HYDROCHLORIDE
  2. TOPAMAX [Suspect]
     Active Substance: TOPIRAMATE
     Indication: MIGRAINE
     Dosage: ?          QUANTITY:1 TABLET(S);?
     Route: 048
     Dates: start: 20160331, end: 20160603

REACTIONS (18)
  - Migraine [None]
  - Somnolence [None]
  - Disturbance in attention [None]
  - Constipation [None]
  - Gastrointestinal bacterial overgrowth [None]
  - Feeling abnormal [None]
  - Weight decreased [None]
  - Abdominal distension [None]
  - Food intolerance [None]
  - Weight increased [None]
  - Gastrooesophageal reflux disease [None]
  - Nausea [None]
  - Flatulence [None]
  - Ovarian cyst [None]
  - Capillary permeability increased [None]
  - Amnesia [None]
  - Fibromyalgia [None]
  - Confusional state [None]

NARRATIVE: CASE EVENT DATE: 20160331
